FAERS Safety Report 18243268 (Version 3)
Quarter: 2024Q4

REPORT INFORMATION
  Report Type: Spontaneous
  Country: US (occurrence: US)
  Receive Date: 20200908
  Receipt Date: 20241003
  Transmission Date: 20250115
  Serious: No
  Sender: HARMONY BIOSCIENCES
  Company Number: US-HARMONY BIOSCIENCES-2020HMY00773

PATIENT
  Age: 38 Year
  Sex: Male
  Weight: 72.562 kg

DRUGS (24)
  1. WAKIX [Suspect]
     Active Substance: PITOLISANT HYDROCHLORIDE
     Indication: Narcolepsy
     Dosage: 35.6 MG, 1X/DAY
     Route: 048
     Dates: start: 20200129, end: 20200430
  2. WAKIX [Suspect]
     Active Substance: PITOLISANT HYDROCHLORIDE
     Indication: Cataplexy
     Dosage: 35.6 MG, 1X/DAY
     Route: 048
     Dates: start: 202005
  3. WAKIX [Suspect]
     Active Substance: PITOLISANT HYDROCHLORIDE
     Dosage: 17.8 MG, 1X/DAY
     Route: 048
  4. WAKIX [Suspect]
     Active Substance: PITOLISANT HYDROCHLORIDE
     Dosage: 35.6 MG, 1X/DAY (2 TABLETS DAILY)
     Route: 048
     Dates: start: 20230322
  5. WAKIX [Suspect]
     Active Substance: PITOLISANT HYDROCHLORIDE
     Dosage: 35.6 MG, 1X/DAY
     Route: 048
  6. LUMRYZ [Concomitant]
     Active Substance: SODIUM OXYBATE
     Dosage: UNK, ^HIGHER DOSE^
  7. LUMRYZ [Concomitant]
     Active Substance: SODIUM OXYBATE
     Dosage: UNK
  8. XYREM [Concomitant]
     Active Substance: SODIUM OXYBATE
  9. RITALIN [Concomitant]
     Active Substance: METHYLPHENIDATE HYDROCHLORIDE
  10. PROSCAR [Concomitant]
     Active Substance: FINASTERIDE
  11. UNSPECIFIED OTC ANTIHISTAMINE [Concomitant]
  12. MAGNESIUM [Concomitant]
     Active Substance: MAGNESIUM
  13. SILDENAFIL CITRATE [Concomitant]
     Active Substance: SILDENAFIL CITRATE
  14. FINASTERIDE [Concomitant]
     Active Substance: FINASTERIDE
  15. ESZOPICLONE [Concomitant]
     Active Substance: ESZOPICLONE
  16. ARMODAFINIL [Concomitant]
     Active Substance: ARMODAFINIL
  17. MELATONIN [Concomitant]
     Active Substance: MELATONIN
  18. VITAMINS [Concomitant]
     Active Substance: VITAMINS
  19. VITAMIN D NOS [Concomitant]
     Active Substance: CHOLECALCIFEROL\ERGOCALCIFEROL
  20. PROBIOTIC ACIDOPHILUS [LACTOBACILLUS ACIDOPHILUS] [Concomitant]
  21. ZYRTEC [Concomitant]
     Active Substance: CETIRIZINE HYDROCHLORIDE
  22. VITAMIN B6 [Concomitant]
     Active Substance: PYRIDOXINE HYDROCHLORIDE
  23. DEXMETHYLPHENIDATE HYDROCHLORIDE [Concomitant]
     Active Substance: DEXMETHYLPHENIDATE HYDROCHLORIDE
  24. ELIDEL [Concomitant]
     Active Substance: PIMECROLIMUS

REACTIONS (8)
  - Seasonal allergy [Recovered/Resolved]
  - Rhinorrhoea [Recovered/Resolved]
  - Oropharyngeal pain [Unknown]
  - Gastrooesophageal reflux disease [Unknown]
  - Fatigue [Recovered/Resolved]
  - Respiratory disorder [Recovered/Resolved]
  - Insomnia [Unknown]
  - Product dose omission issue [Recovered/Resolved]

NARRATIVE: CASE EVENT DATE: 20200301
